FAERS Safety Report 8234437-X (Version None)
Quarter: 2012Q1

REPORT INFORMATION
  Report Type: 
  Country: None (occurrence: None)
  Receive Date: 20120326
  Receipt Date: 20120316
  Transmission Date: 20120608
  Serious: Yes (Other)
  Sender: FDA-Public Use
  Company Number: CA-ROCHE-1042527

PATIENT
  Sex: Female

DRUGS (6)
  1. VENTOLIN [Concomitant]
  2. SINGULAIR [Concomitant]
  3. SYMBICORT [Concomitant]
  4. REACTINE (CANADA) [Concomitant]
  5. XOLAIR [Suspect]
     Indication: ASTHMA
     Route: 058
     Dates: start: 20120106
  6. PREDNISONE TAB [Concomitant]

REACTIONS (2)
  - STAPHYLOCOCCAL ABSCESS [None]
  - NASOPHARYNGITIS [None]
